FAERS Safety Report 21402110 (Version 10)
Quarter: 2025Q3

REPORT INFORMATION
  Report Type: Report from Study
  Country: US (occurrence: US)
  Receive Date: 20221003
  Receipt Date: 20250702
  Transmission Date: 20251020
  Serious: Yes (Other)
  Sender: ABBVIE
  Company Number: US-ABBVIE-22K-163-4499679-00

PATIENT
  Age: 93 Year
  Sex: Male

DRUGS (27)
  1. VENCLEXTA [Suspect]
     Active Substance: VENETOCLAX
     Indication: Waldenstrom^s macroglobulinaemia
     Dosage: STRENGTH: 100 MG?TAKE 2 TABLET(S) BY MOUTH (200MG TOTAL) DAILY.
     Route: 048
  2. VENCLEXTA [Suspect]
     Active Substance: VENETOCLAX
     Indication: Waldenstrom^s macroglobulinaemia
     Dosage: 100MG TABLET TAKE TWO TABLET(S) BY MOUTH EVERY DAY
     Route: 048
     Dates: start: 20220506
  3. VENCLEXTA [Suspect]
     Active Substance: VENETOCLAX
     Indication: Waldenstrom^s macroglobulinaemia
     Dosage: FORM STRENGTH: 100 MILLIGRAM
     Route: 048
  4. VENCLEXTA [Suspect]
     Active Substance: VENETOCLAX
     Indication: Waldenstrom^s macroglobulinaemia
     Dosage: TAKE 2 TABLET(S) BY MOUTH? (200MG TOTAL) DAILY
     Route: 048
  5. ALLEGRA [Concomitant]
     Active Substance: FEXOFENADINE HYDROCHLORIDE
     Indication: Product used for unknown indication
     Route: 048
  6. ALLOPURINOL [Concomitant]
     Active Substance: ALLOPURINOL
     Indication: Product used for unknown indication
     Dosage: TAKE 1 TABLET BY MOUTH DAILY.
     Route: 048
  7. BENZONATATE [Concomitant]
     Active Substance: BENZONATATE
     Indication: Cough
     Route: 048
  8. COMBIGAN [Concomitant]
     Active Substance: BRIMONIDINE TARTRATE\TIMOLOL MALEATE
     Indication: Eye disorder
     Dosage: 0.2-0.5% SOLUTION OPHTHALMIC ?ADMINISTER 1 DROP INTO THE LEFT EYE EVERY 12 HOURS
  9. CHOLECALCIFEROL [Concomitant]
     Active Substance: CHOLECALCIFEROL
     Indication: Product used for unknown indication
     Route: 048
  10. CIALIS [Concomitant]
     Active Substance: TADALAFIL
     Indication: Benign prostatic hyperplasia
     Route: 048
  11. CIPROFLOXACIN [Concomitant]
     Active Substance: CIPROFLOXACIN
     Indication: Eye disorder
  12. COENZYME Q10 [Concomitant]
     Active Substance: DIETARY SUPPLEMENT\UBIDECARENONE
     Indication: Product used for unknown indication
     Route: 048
  13. MULTAQ [Concomitant]
     Active Substance: DRONEDARONE
     Indication: Product used for unknown indication
     Dosage: TAKE 1 TABLET (400 MG) BY MOUTH 2 TIMES A DAY WITH MEALS
     Route: 048
  14. FAMOTIDINE [Concomitant]
     Active Substance: FAMOTIDINE
     Indication: Product used for unknown indication
     Route: 048
  15. FINASTERIDE [Concomitant]
     Active Substance: FINASTERIDE
     Indication: Product used for unknown indication
  16. Immunoglobulin [Concomitant]
     Indication: Anti-infective therapy
  17. IMODIUM A-D [Concomitant]
     Active Substance: LOPERAMIDE HYDROCHLORIDE
     Indication: Diarrhoea
     Route: 048
  18. LOSARTAN [Concomitant]
     Active Substance: LOSARTAN
     Indication: Product used for unknown indication
  19. MAGNESIUM [Concomitant]
     Active Substance: MAGNESIUM
     Indication: Product used for unknown indication
     Route: 048
  20. MOMETASONE [Concomitant]
     Active Substance: MOMETASONE
     Indication: Product used for unknown indication
  21. VITAMINS [Concomitant]
     Active Substance: VITAMINS
     Indication: Hypovitaminosis
     Dosage: (MULTIVITAMIN ADULT OR)?TAKE 1 TABLET BY MOUTH DAILY.
     Route: 048
  22. REFRESH CLASSIC [Concomitant]
     Active Substance: POLYVINYL ALCOHOL\POVIDONE
     Indication: Eye irritation
  23. PREDNISOLONE ACETATE [Concomitant]
     Active Substance: PREDNISOLONE ACETATE
     Indication: Eye disorder
  24. XARELTO [Concomitant]
     Active Substance: RIVAROXABAN
     Indication: Product used for unknown indication
     Route: 048
  25. ROSUVASTATIN [Concomitant]
     Active Substance: ROSUVASTATIN
     Indication: Product used for unknown indication
     Route: 048
  26. TAMSULOSIN [Concomitant]
     Active Substance: TAMSULOSIN
     Indication: Product used for unknown indication
     Route: 048
  27. VALACYCLOVIR [Concomitant]
     Active Substance: VALACYCLOVIR HYDROCHLORIDE
     Indication: Product used for unknown indication
     Dosage: TAKE 1 TABLET (500 MG) BY MOUTH DAILY
     Route: 048

REACTIONS (14)
  - Skin cancer [Unknown]
  - Rhinorrhoea [Unknown]
  - Off label use [Unknown]
  - Diarrhoea [Unknown]
  - Red blood cell count decreased [Unknown]
  - Fatigue [Unknown]
  - Blood pressure fluctuation [Unknown]
  - Asthenia [Unknown]
  - Memory impairment [Unknown]
  - Cough [Unknown]
  - Secretion discharge [Unknown]
  - Eyelid pain [Unknown]
  - Dry eye [Unknown]
  - Eye haemorrhage [Unknown]

NARRATIVE: CASE EVENT DATE: 20220701
